FAERS Safety Report 15351883 (Version 1)
Quarter: 2018Q3

REPORT INFORMATION
  Report Type: Spontaneous
  Country: FR (occurrence: FR)
  Receive Date: 20180905
  Receipt Date: 20180905
  Transmission Date: 20181010
  Serious: Yes (Hospitalization)
  Sender: FDA-Public Use
  Company Number: PHHY2006FR011084

PATIENT
  Age: 39 Year
  Sex: Female
  Weight: 77 kg

DRUGS (6)
  1. IMPLANON [Interacting]
     Active Substance: ETONOGESTREL
     Indication: CONTRACEPTION
     Dosage: 1 DF, UNK
     Route: 050
     Dates: start: 20040101, end: 20060706
  2. TRILEPTAL [Suspect]
     Active Substance: OXCARBAZEPINE
     Indication: OLIGODENDROGLIOMA
     Dosage: 2100 MG, QD (900 MG IN THE MORNING AND 1200 MG IN THE EVENING)
     Route: 048
     Dates: start: 20010101
  3. URBANYL [Concomitant]
     Active Substance: CLOBAZAM
     Indication: OLIGODENDROGLIOMA
     Dosage: 10 MG, QD
     Route: 065
     Dates: start: 2001
  4. ZOLOFT [Concomitant]
     Active Substance: SERTRALINE HYDROCHLORIDE
     Indication: OLIGODENDROGLIOMA
     Dosage: 1 DF, QD (ONCE)
     Route: 065
     Dates: start: 200601
  5. CODOLIPRANE [Concomitant]
     Active Substance: ACETAMINOPHEN\CODEINE PHOSPHATE
     Indication: PRODUCT USED FOR UNKNOWN INDICATION
     Dosage: UNK UNK, PRN
     Route: 065
  6. NEURONTIN [Concomitant]
     Active Substance: GABAPENTIN
     Indication: OLIGODENDROGLIOMA
     Dosage: 2400 MG, QD
     Route: 065

REACTIONS (2)
  - Pregnancy [Unknown]
  - Therapeutic response decreased [Unknown]

NARRATIVE: CASE EVENT DATE: 20060215
